FAERS Safety Report 4557998-0 (Version None)
Quarter: 2005Q1

REPORT INFORMATION
  Report Type: 
  Country: None (occurrence: None)
  Receive Date: 20050121
  Receipt Date: 20040420
  Transmission Date: 20050727
  Serious: No
  Sender: FDA-Public Use
  Company Number: US-BRISTOL-MYERS SQUIBB COMPANY-12570933

PATIENT
  Age: 46 Year
  Sex: Female

DRUGS (4)
  1. SERZONE [Suspect]
     Dates: start: 20000605, end: 20000817
  2. XANAX [Concomitant]
  3. AMBIEN [Concomitant]
  4. PAMELOR [Concomitant]

REACTIONS (2)
  - ALANINE AMINOTRANSFERASE INCREASED [None]
  - ASPARTATE AMINOTRANSFERASE INCREASED [None]
